FAERS Safety Report 12145803 (Version 2)
Quarter: 2016Q2

REPORT INFORMATION
  Report Type: Spontaneous
  Country: US (occurrence: US)
  Receive Date: 20160304
  Receipt Date: 20160407
  Transmission Date: 20160815
  Serious: Yes (Other)
  Sender: FDA-Public Use
  Company Number: US-LUNDBECK-DKLU2010520

PATIENT
  Age: 48 Year
  Sex: Male

DRUGS (3)
  1. DILTIAZEM [Concomitant]
     Active Substance: DILTIAZEM
     Indication: PRODUCT USED FOR UNKNOWN INDICATION
     Route: 065
  2. NORTHERA [Suspect]
     Active Substance: DROXIDOPA
     Indication: NEUROPATHY PERIPHERAL
  3. NORTHERA [Suspect]
     Active Substance: DROXIDOPA
     Indication: AUTONOMIC FAILURE SYNDROME
     Route: 065

REACTIONS (8)
  - Fall [Unknown]
  - Dizziness [Unknown]
  - Muscular weakness [Recovered/Resolved]
  - Amnesia [Unknown]
  - Cerebrovascular accident [Unknown]
  - Muscle spasms [Unknown]
  - Paraesthesia [Recovered/Resolved]
  - Sensory loss [Unknown]

NARRATIVE: CASE EVENT DATE: 201602
